FAERS Safety Report 12094229 (Version 1)
Quarter: 2016Q1

REPORT INFORMATION
  Report Type: Spontaneous
  Country: ES (occurrence: ES)
  Receive Date: 20160219
  Receipt Date: 20160219
  Transmission Date: 20160526
  Serious: Yes (Life-Threatening, Hospitalization)
  Sender: FDA-Public Use
  Company Number: PHHY2016ES019965

PATIENT
  Age: 81 Year
  Sex: Male
  Weight: 70 kg

DRUGS (10)
  1. SEPTRIN [Suspect]
     Active Substance: SULFAMETHOXAZOLE\TRIMETHOPRIM
     Indication: POST PROCEDURAL INFECTION
     Dosage: 1 DF (160 MG SULF AND 800 MG TRIM), BID
     Route: 048
     Dates: start: 20151101
  2. SINTROM [Suspect]
     Active Substance: ACENOCOUMAROL
     Indication: ATRIAL FIBRILLATION
     Dosage: UNK
     Route: 048
     Dates: start: 20150101
  3. CIPROFLOXACIN. [Suspect]
     Active Substance: CIPROFLOXACIN
     Indication: POST PROCEDURAL INFECTION
     Dosage: 250 MG, BID
     Route: 048
     Dates: start: 20151101
  4. INCRESYNC 12.5MG/30MG [Suspect]
     Active Substance: ALOGLIPTIN BENZOATE\PIOGLITAZONE HYDROCHLORIDE
     Indication: TYPE 2 DIABETES MELLITUS
     Dosage: 1 DF, QD (12.5 MG ALOG AND 30 MG PIOG)
     Route: 048
     Dates: start: 20160126, end: 20160127
  5. PERMIXON [Suspect]
     Active Substance: SAW PALMETTO
     Indication: BENIGN PROSTATIC HYPERPLASIA
     Dosage: 160 MG, BID
     Route: 048
     Dates: start: 20140201
  6. AMLODIPINE [Suspect]
     Active Substance: AMLODIPINE BESYLATE
     Indication: HYPERTENSION
     Dosage: 1 DF, QD
     Route: 048
     Dates: start: 20151101
  7. PIOGLITAZONA [Concomitant]
     Indication: TYPE 2 DIABETES MELLITUS
     Dosage: 30 MG, QD
     Route: 048
     Dates: end: 201601
  8. LIVAZO [Suspect]
     Active Substance: PITAVASTATIN CALCIUM
     Indication: HYPERCHOLESTEROLAEMIA
     Dosage: 4 MG, QD
     Route: 048
     Dates: start: 20150219
  9. GLIMEPIRIDA [Concomitant]
     Active Substance: GLIMEPIRIDE
     Indication: TYPE 2 DIABETES MELLITUS
     Dosage: 2 MG, QD
     Route: 048
     Dates: end: 201601
  10. OMEPRAZOLE. [Suspect]
     Active Substance: OMEPRAZOLE
     Indication: PRODUCT USED FOR UNKNOWN INDICATION
     Dosage: 40 MG, QD (AT THE TIME OF BREAKFAST)
     Route: 048
     Dates: start: 20151015

REACTIONS (1)
  - Hypoglycaemia [Recovered/Resolved]

NARRATIVE: CASE EVENT DATE: 20160128
